FAERS Safety Report 21296648 (Version 1)
Quarter: 2022Q3

REPORT INFORMATION
  Report Type: Spontaneous
  Country: US (occurrence: None)
  Receive Date: 20220902
  Receipt Date: 20220902
  Transmission Date: 20221027
  Serious: No
  Sender: FDA-Public Use
  Company Number: None

PATIENT
  Sex: Female

DRUGS (1)
  1. STELARA [Suspect]
     Active Substance: USTEKINUMAB
     Indication: Colitis
     Dosage: OTHER FREQUENCY : Q 4WKS;?
     Route: 058
     Dates: start: 20200311

REACTIONS (3)
  - Device defective [None]
  - Device malfunction [None]
  - Drug dose omission by device [None]
